FAERS Safety Report 8473702-8 (Version None)
Quarter: 2012Q2

REPORT INFORMATION
  Report Type: 
  Country: None (occurrence: None)
  Receive Date: 20120628
  Receipt Date: 20120614
  Transmission Date: 20120825
  Serious: Yes (Life-Threatening, Other)
  Sender: FDA-Public Use
  Company Number: US-MYLANLABS-2011S1019159

PATIENT
  Age: 72 Year
  Sex: Female
  Weight: 74.84 kg

DRUGS (22)
  1. CYMBALTA [Concomitant]
  2. MILK OF MAGNESIA TAB [Concomitant]
  3. CLOZAPINE [Suspect]
     Route: 048
     Dates: start: 20111223
  4. REQUIP [Concomitant]
  5. MULTI-VITAMIN [Concomitant]
  6. ACETAMINOPHEN [Concomitant]
  7. SINEMET [Concomitant]
     Dosage: 5 TIMES DAILY
  8. TRICOR [Concomitant]
  9. ACETAMINOPHEN [Concomitant]
  10. CLOZAPINE [Suspect]
     Route: 048
  11. GABAPENTIN [Concomitant]
  12. WELLBUTRIN SR [Concomitant]
  13. SENNA-MINT WAF [Concomitant]
  14. CLOZAPINE [Suspect]
     Indication: TREMOR
     Route: 048
     Dates: end: 20111219
  15. CLOZAPINE [Suspect]
     Indication: PARKINSON'S DISEASE
     Route: 048
     Dates: end: 20111219
  16. CLOZAPINE [Suspect]
     Route: 048
     Dates: start: 20111223
  17. CLOZAPINE [Suspect]
     Route: 048
  18. STALEVO 100 [Concomitant]
     Dates: start: 20111107
  19. POTASSIUM ACETATE [Concomitant]
  20. SPIRONOLACTONE [Concomitant]
  21. ENEMA FLEET [Concomitant]
  22. CLARITIN /00413701/ [Concomitant]

REACTIONS (3)
  - LEUKOPENIA [None]
  - GRANULOCYTOPENIA [None]
  - AGRANULOCYTOSIS [None]
